FAERS Safety Report 10206131 (Version 1)
Quarter: 2014Q2

REPORT INFORMATION
  Report Type: Spontaneous
  Country: US (occurrence: US)
  Receive Date: 20140530
  Receipt Date: 20140530
  Transmission Date: 20141212
  Serious: Yes (Other)
  Sender: FDA-Public Use
  Company Number: US-PFIZER INC-2014149387

PATIENT
  Age: 44 Year
  Sex: Female
  Weight: 95.24 kg

DRUGS (10)
  1. EFFEXOR XR [Suspect]
     Indication: DEPRESSION
     Dosage: 225 MG (BY TAKING ONE ORAL CAPSULE OF 75MG AND ONE ORAL CAPSULE OF 150MG), 1X/DAY
     Route: 048
  2. NEXIUM [Concomitant]
     Indication: GASTROOESOPHAGEAL REFLUX DISEASE
     Dosage: UNK
  3. ADVAIR DISKUS [Concomitant]
     Indication: ASTHMA
     Dosage: 250/50, 2X/DAY
     Route: 055
  4. PROAIR HFA [Concomitant]
     Indication: ASTHMA
     Dosage: UNK
     Route: 055
  5. SIMVASTATIN [Concomitant]
     Indication: BLOOD CHOLESTEROL INCREASED
     Dosage: UNK
  6. CLONAZEPAM [Concomitant]
     Indication: ANXIETY
     Dosage: UNK
  7. FLEXERIL [Concomitant]
     Indication: BACK PAIN
     Dosage: UNK
  8. CLARITIN [Concomitant]
     Indication: HYPERSENSITIVITY
     Dosage: UNK, 1X/DAY IN THE MORNING
  9. ZYRTEC [Concomitant]
     Indication: HYPERSENSITIVITY
     Dosage: UNK, 1X/DAY (AT NIGHT)
  10. BENADRYL [Concomitant]
     Indication: HYPERSENSITIVITY
     Dosage: UNK, 1X/DAY

REACTIONS (1)
  - Type 2 diabetes mellitus [Not Recovered/Not Resolved]
